FAERS Safety Report 11090019 (Version 1)
Quarter: 2015Q2

REPORT INFORMATION
  Report Type: Spontaneous
  Country: US (occurrence: None)
  Receive Date: 20150504
  Receipt Date: 20150504
  Transmission Date: 20150821
  Serious: No
  Sender: FDA-Public Use
  Company Number: None

PATIENT
  Age: 60 Year
  Sex: Male

DRUGS (1)
  1. HUMIRA [Suspect]
     Active Substance: ADALIMUMAB
     Indication: ULCER
     Route: 058
     Dates: start: 20140807

REACTIONS (2)
  - Injection site reaction [None]
  - Injection site rash [None]

NARRATIVE: CASE EVENT DATE: 20140807
